FAERS Safety Report 5690708-2 (Version None)
Quarter: 2008Q2

REPORT INFORMATION
  Report Type: 
  Country: None (occurrence: None)
  Receive Date: 20080401
  Receipt Date: 20080327
  Transmission Date: 20081010
  Serious: Yes (Hospitalization)
  Sender: FDA-Public Use
  Company Number: FR-MERCK-0803FRA00068

PATIENT
  Age: 73 Year
  Sex: Male

DRUGS (6)
  1. PRIMAXIN [Suspect]
     Indication: OESOPHAGEAL FISTULA
     Route: 042
     Dates: start: 20071214, end: 20071216
  2. PRIMAXIN [Suspect]
     Route: 042
     Dates: start: 20071217, end: 20071227
  3. CIPROFLOXACIN HYDROCHLORIDE [Concomitant]
     Indication: OESOPHAGEAL FISTULA
     Route: 042
     Dates: start: 20071214, end: 20071227
  4. VANCOMYCIN [Concomitant]
     Indication: OESOPHAGEAL FISTULA
     Route: 042
     Dates: start: 20071214, end: 20071227
  5. CANCIDAS [Concomitant]
     Indication: OESOPHAGEAL FISTULA
     Route: 042
     Dates: start: 20071214, end: 20071227
  6. FUROSEMIDE [Concomitant]
     Route: 042
     Dates: start: 20071212, end: 20071217

REACTIONS (1)
  - PARTIAL SEIZURES [None]
